FAERS Safety Report 21761025 (Version 1)
Quarter: 2022Q4

REPORT INFORMATION
  Report Type: Spontaneous
  Country: HR (occurrence: HR)
  Receive Date: 20221221
  Receipt Date: 20221221
  Transmission Date: 20230113
  Serious: Yes (Other)
  Sender: FDA-Public Use
  Company Number: None

PATIENT
  Age: 54 Year
  Sex: Female
  Weight: 65 kg

DRUGS (4)
  1. FEVARIN [Suspect]
     Active Substance: FLUVOXAMINE MALEATE
     Indication: Product used for unknown indication
     Dosage: 30 X 75 MG (2250 MG)
     Route: 048
     Dates: start: 20220904, end: 20220904
  2. AMLODIPINE\PERINDOPRIL [Suspect]
     Active Substance: AMLODIPINE\PERINDOPRIL
     Indication: Product used for unknown indication
     Dosage: 1DF= 4MG PERINDOPRIL + 5MG AMLODIPINE
     Route: 048
     Dates: start: 20220904, end: 20220904
  3. NORMABEL [Suspect]
     Active Substance: DIAZEPAM
     Indication: Product used for unknown indication
     Dosage: 30 X 5 MG (150 MG)
     Route: 048
     Dates: start: 20220904, end: 20220904
  4. ACETAMINOPHEN\TRAMADOL HYDROCHLORIDE [Suspect]
     Active Substance: ACETAMINOPHEN\TRAMADOL HYDROCHLORIDE
     Indication: Product used for unknown indication
     Dosage: 1DF= 37.5TRAMADOL+325MG PARACETAMOL
     Route: 048
     Dates: start: 20220904, end: 20220904

REACTIONS (7)
  - Suicide attempt [Unknown]
  - Coma [Unknown]
  - Intentional overdose [Unknown]
  - Blood pressure normal [Unknown]
  - Blood potassium increased [Unknown]
  - White blood cell count increased [Unknown]
  - Transaminases increased [Unknown]

NARRATIVE: CASE EVENT DATE: 20220904
